FAERS Safety Report 16749631 (Version 1)
Quarter: 2019Q3

REPORT INFORMATION
  Report Type: Spontaneous
  Country: US (occurrence: US)
  Receive Date: 20190828
  Receipt Date: 20190828
  Transmission Date: 20191005
  Serious: Yes (Other)
  Sender: FDA-Public Use
  Company Number: US-PFIZER INC-2019367731

PATIENT
  Age: 68 Year
  Sex: Female

DRUGS (2)
  1. IPRATROPIUM BROMIDE AND ALBUTEROL SULFATE [Concomitant]
     Active Substance: ALBUTEROL SULFATE\IPRATROPIUM BROMIDE
     Dosage: UNK
  2. IBUPROFEN. [Suspect]
     Active Substance: IBUPROFEN
     Dosage: UNK

REACTIONS (7)
  - Restless legs syndrome [Unknown]
  - Dyspnoea [Unknown]
  - Agitation [Unknown]
  - Feeling hot [Unknown]
  - Suicidal ideation [Unknown]
  - Impaired quality of life [Unknown]
  - Sleep disorder [Unknown]
